FAERS Safety Report 11619974 (Version 2)
Quarter: 2015Q4

REPORT INFORMATION
  Report Type: Spontaneous
  Country: US (occurrence: US)
  Receive Date: 20151012
  Receipt Date: 20151019
  Transmission Date: 20160304
  Serious: No
  Sender: FDA-Public Use
  Company Number: US-PFIZER INC-2015327530

PATIENT
  Age: 60 Year
  Sex: Male
  Weight: 86 kg

DRUGS (1)
  1. AMLODIPINE BESILATE [Suspect]
     Active Substance: AMLODIPINE BESYLATE
     Indication: HYPERTENSION
     Dosage: 5 MG, 1X/DAY, EVERY NIGHT
     Dates: start: 201507

REACTIONS (4)
  - Dysphagia [Unknown]
  - Retching [Recovered/Resolved]
  - Dysgeusia [Recovered/Resolved]
  - Foreign body [Recovered/Resolved]
